FAERS Safety Report 6172931-6 (Version None)
Quarter: 2009Q2

REPORT INFORMATION
  Report Type: 
  Country: None (occurrence: None)
  Receive Date: 20090428
  Receipt Date: 20090415
  Transmission Date: 20091009
  Serious: Yes (Other)
  Sender: FDA-Public Use
  Company Number: 1000003970

PATIENT
  Age: 76 Year
  Sex: Male
  Weight: 61 kg

DRUGS (8)
  1. MEMANTINE HCL [Suspect]
     Indication: DEMENTIA ALZHEIMER'S TYPE
     Dosage: 20 MG (20 MG,1 IN 1 D),ORAL
     Route: 048
     Dates: start: 20070123
  2. SOLIFENACIN SUCCINATE [Concomitant]
  3. NAFTOPIDIL [Concomitant]
  4. DONEPEZIL HYDROCHLORIDE [Concomitant]
  5. KETOPROFEN [Concomitant]
  6. AZULENE [Concomitant]
  7. PIRENOXINE [Concomitant]
  8. FOLIC ACID [Concomitant]

REACTIONS (1)
  - PROSTATE CANCER [None]
